FAERS Safety Report 8017997-3 (Version None)
Quarter: 2012Q1

REPORT INFORMATION
  Report Type: 
  Country: None (occurrence: None)
  Receive Date: 20120103
  Receipt Date: 20111228
  Transmission Date: 20120608
  Serious: Yes (Hospitalization)
  Sender: FDA-Public Use
  Company Number: US-JNJFOC-20110807214

PATIENT
  Sex: Female
  Weight: 75.75 kg

DRUGS (20)
  1. LOVENOX [Concomitant]
     Route: 058
  2. MULTI-VITAMINS [Concomitant]
     Route: 048
  3. ACETAMINOPHEN [Concomitant]
     Route: 065
  4. VITAMIN B-12 [Concomitant]
     Route: 048
  5. CALCIUM WITH VITAMIN  D [Concomitant]
     Route: 048
  6. ZOFRAN [Concomitant]
     Indication: PREMEDICATION
     Route: 042
     Dates: start: 20110316, end: 20110930
  7. VITAMIN C [Concomitant]
     Route: 048
  8. ZANTAC [Concomitant]
     Indication: PREMEDICATION
     Route: 042
     Dates: start: 20110316, end: 20110930
  9. VITAMIN E [Concomitant]
     Route: 048
  10. VITAMIN D [Concomitant]
     Route: 048
  11. VITAMIN B COMPLEX CAP [Concomitant]
     Route: 048
  12. BENADRYL [Concomitant]
     Indication: PREMEDICATION
     Route: 042
     Dates: start: 20110316, end: 20110930
  13. DECADRON [Concomitant]
     Indication: PREMEDICATION
     Route: 042
     Dates: start: 20110316, end: 20110930
  14. SENNA-GEN [Concomitant]
     Route: 048
  15. DOXORUBICIN HCL [Suspect]
     Indication: OVARIAN CANCER RECURRENT
     Route: 042
     Dates: start: 20110316, end: 20110930
  16. METOPROLOL TARTRATE [Concomitant]
     Route: 048
  17. SIMVASTATIN [Concomitant]
     Route: 048
  18. COLACE [Concomitant]
     Route: 048
  19. PROTONIX [Concomitant]
     Route: 048
  20. NORVASC [Concomitant]
     Route: 048

REACTIONS (11)
  - LUNG DISORDER [None]
  - FATIGUE [None]
  - ASTHENIA [None]
  - RESPIRATORY TRACT IRRITATION [None]
  - FEELING ABNORMAL [None]
  - PRODUCT QUALITY ISSUE [None]
  - DIZZINESS [None]
  - DYSPNOEA [None]
  - PNEUMONIA [None]
  - RED BLOOD CELL COUNT DECREASED [None]
  - COUGH [None]
